FAERS Safety Report 8149173-8 (Version None)
Quarter: 2012Q1

REPORT INFORMATION
  Report Type: 
  Country: None (occurrence: None)
  Receive Date: 20120218
  Receipt Date: 20120105
  Transmission Date: 20120608
  Serious: No
  Sender: FDA-Public Use
  Company Number: US-ALLERGAN-1111993US

PATIENT
  Age: 40 Year
  Sex: Female

DRUGS (3)
  1. BOTOX COSMETIC [Suspect]
     Indication: SKIN WRINKLING
     Dosage: 47 UNITS, SINGLE
     Route: 030
     Dates: start: 20110502, end: 20110502
  2. NAPROXEN (ALEVE) [Concomitant]
     Indication: PRODUCT USED FOR UNKNOWN INDICATION
     Dosage: UNK
  3. BOTOX COSMETIC [Suspect]
     Dosage: LGLABELLA 21 UNITS, FRONTALIS 10 UNITS, CROWS FEET 6 UNITS/ SIDE, AND THE UPPER VERMILION BORDER 4 U
     Route: 030
     Dates: start: 20110822, end: 20110822

REACTIONS (2)
  - EYELID PTOSIS [None]
  - MUSCULAR WEAKNESS [None]
